FAERS Safety Report 8726642 (Version 3)
Quarter: 2013Q3

REPORT INFORMATION
  Report Type: Report from Study
  Country: US (occurrence: US)
  Receive Date: 20120816
  Receipt Date: 20130715
  Transmission Date: 20140515
  Serious: Yes (Other)
  Sender: FDA-Public Use
  Company Number: PHEH2012US012764

PATIENT
  Age: 50 Year
  Sex: Female

DRUGS (11)
  1. GILENYA [Suspect]
     Indication: MULTIPLE SCLEROSIS
     Dosage: 0.5 MG, QD
     Route: 048
     Dates: start: 20110920, end: 20120807
  2. GILENYA [Suspect]
     Dosage: 0.5 MG, QD
     Route: 048
  3. AMITRIPTYLINE [Concomitant]
     Dosage: 10 MG, QD
     Route: 048
  4. AMITRIPTYLINE [Concomitant]
     Dosage: 50 MG, QHS
     Route: 048
  5. ARICEPT [Concomitant]
     Dosage: 5 MG, QD
     Route: 048
  6. DEPAKOTE [Concomitant]
     Dosage: 500 MG, BID
     Route: 048
  7. GABAPENTIN [Concomitant]
     Dosage: 600 MG, QID (PRN)
     Route: 048
  8. LORATADINE [Concomitant]
     Dosage: 10 MG, PRN
     Route: 048
  9. RISPERIDONE [Concomitant]
     Dosage: 0.5 MG, 2 QHS
  10. TRAMADOL [Concomitant]
     Dosage: 50 MG, 2 PRN
     Route: 048
  11. CONTRACEPTIVES [Concomitant]
     Route: 048

REACTIONS (25)
  - Laceration [Unknown]
  - Fall [Unknown]
  - Central nervous system lesion [Unknown]
  - Amnesia [Unknown]
  - Confusional state [Unknown]
  - Balance disorder [Unknown]
  - Speech disorder [Unknown]
  - Clumsiness [Unknown]
  - Personality change [Unknown]
  - Restless legs syndrome [Unknown]
  - Contusion [Unknown]
  - Pain in extremity [Unknown]
  - Oedema peripheral [Unknown]
  - Pain [Unknown]
  - Multiple sclerosis relapse [Unknown]
  - Visual impairment [Unknown]
  - Diplopia [Unknown]
  - Lethargy [Unknown]
  - Gait disturbance [Unknown]
  - Hypoaesthesia [Unknown]
  - Vision blurred [Not Recovered/Not Resolved]
  - Asthenia [Unknown]
  - Headache [Unknown]
  - Dizziness [Unknown]
  - Back pain [Unknown]
